FAERS Safety Report 21350631 (Version 1)
Quarter: 2022Q3

REPORT INFORMATION
  Report Type: Spontaneous
  Country: CN (occurrence: CN)
  Receive Date: 20220919
  Receipt Date: 20220919
  Transmission Date: 20221026
  Serious: Yes (Hospitalization)
  Sender: FDA-Public Use
  Company Number: CN-PFIZER INC-PV202200065803

PATIENT
  Age: 2 Year
  Sex: Female
  Weight: 9.4 kg

DRUGS (8)
  1. CYTARABINE [Suspect]
     Active Substance: CYTARABINE
     Indication: Acute lymphocytic leukaemia
     Dosage: 36 MG, 1X/DAY
     Route: 041
     Dates: start: 20220826, end: 20220830
  2. CYTARABINE [Suspect]
     Active Substance: CYTARABINE
     Dosage: 36 MG, 1X/DAY
     Route: 041
     Dates: start: 20220902, end: 20220906
  3. PEGASPARGASE [Suspect]
     Active Substance: PEGASPARGASE
     Indication: Acute lymphocytic leukaemia
     Dosage: 1.6 ML, 1X/DAY
     Route: 030
     Dates: start: 20220825, end: 20220825
  4. MERCAPTOPURINE [Suspect]
     Active Substance: MERCAPTOPURINE
     Indication: Acute lymphocytic leukaemia
     Dosage: 25 MG, 1X/DAY
     Route: 048
     Dates: start: 20220824, end: 20220907
  5. CYCLOPHOSPHAMIDE [Suspect]
     Active Substance: CYCLOPHOSPHAMIDE
     Indication: Acute lymphocytic leukaemia
     Dosage: 0.48 G, 1X/DAY
     Route: 041
     Dates: start: 20220824, end: 20220824
  6. DEXTROSE [Concomitant]
     Active Substance: DEXTROSE
     Indication: Vehicle solution use
     Dosage: 100 ML, 1X/DAY
     Route: 041
     Dates: start: 20220824, end: 20220824
  7. DEXTROSE [Concomitant]
     Active Substance: DEXTROSE
     Dosage: 100 ML, 1X/DAY
     Route: 041
     Dates: start: 20220826, end: 20220830
  8. DEXTROSE [Concomitant]
     Active Substance: DEXTROSE
     Dosage: 100 ML, 1X/DAY
     Route: 041
     Dates: start: 20220902, end: 20220906

REACTIONS (2)
  - Myelosuppression [Recovering/Resolving]
  - Hepatic function abnormal [Recovering/Resolving]

NARRATIVE: CASE EVENT DATE: 20220904
